FAERS Safety Report 9862098 (Version 3)
Quarter: 2014Q3

REPORT INFORMATION
  Report Type: Spontaneous
  Country: ZA (occurrence: ZA)
  Receive Date: 20140203
  Receipt Date: 20140808
  Transmission Date: 20150326
  Serious: No
  Sender: FDA-Public Use
  Company Number: ZA-JNJFOC-20140112073

PATIENT
  Sex: Female

DRUGS (2)
  1. DUROGESIC [Suspect]
     Active Substance: FENTANYL
     Indication: NEOPLASM MALIGNANT
     Dosage: ABOVE 50 UG/HR
     Route: 062
  2. DUROGESIC [Suspect]
     Active Substance: FENTANYL
     Indication: NEOPLASM MALIGNANT
     Route: 062

REACTIONS (12)
  - Overdose [Unknown]
  - Hyperhidrosis [Unknown]
  - Pruritus [Unknown]
  - Hearing impaired [Unknown]
  - Epigastric discomfort [Unknown]
  - Drug ineffective [Unknown]
  - Inappropriate schedule of drug administration [Unknown]
  - Drug effect delayed [Unknown]
  - Vomiting [Unknown]
  - Skin irritation [Unknown]
  - Dry mouth [Unknown]
  - Urinary tract infection [Unknown]
